FAERS Safety Report 12299991 (Version 1)
Quarter: 2016Q2

REPORT INFORMATION
  Report Type: Spontaneous
  Country: ES (occurrence: ES)
  Receive Date: 20160425
  Receipt Date: 20160425
  Transmission Date: 20160815
  Serious: Yes (Other)
  Sender: FDA-Public Use
  Company Number: ES-APOTEX-2016AP007927

PATIENT
  Age: 62 Year
  Sex: Female

DRUGS (4)
  1. LETROZOLE. [Suspect]
     Active Substance: LETROZOLE
     Indication: HORMONE THERAPY
     Route: 065
  2. TRASTUZUMAB [Suspect]
     Active Substance: TRASTUZUMAB
     Dosage: 6 MG/KG EVERY 21 DAYS- FOLLOWING 1ST CYCLE OF THE 6 CYCLES BEFORE SURGERY
  3. TRASTUZUMAB [Suspect]
     Active Substance: TRASTUZUMAB
     Indication: NEUROENDOCRINE BREAST TUMOUR
     Dosage: 6 MG/KG EVERY 21 DAYS FOR A YEAR- AFTER SURGERY
     Route: 065
  4. TRASTUZUMAB [Suspect]
     Active Substance: TRASTUZUMAB
     Dosage: 8 MG/KG EVERY 21 DAYS- 1ST CYCLE OF THE 6 CYCLES BEFORE SURGERY

REACTIONS (1)
  - Ventricular hypokinesia [Unknown]
